FAERS Safety Report 4286173-2 (Version None)
Quarter: 2004Q1

REPORT INFORMATION
  Report Type: 
  Country: None (occurrence: None)
  Receive Date: 20040205
  Receipt Date: 20040128
  Transmission Date: 20041129
  Serious: Yes (Hospitalization)
  Sender: FDA-Public Use
  Company Number: PHEH2004US01303

PATIENT
  Age: 1 Month
  Sex: Female

DRUGS (2)
  1. METHERGINE [Suspect]
     Dosage: UNK, ONCE/SINGLE
     Route: 030
     Dates: start: 20040121, end: 20040121
  2. METHERGINE [Suspect]
     Dosage: .2 MG, UNK
     Route: 048
     Dates: start: 20040115, end: 20040115

REACTIONS (3)
  - CONVULSION [None]
  - DRUG EXPOSURE VIA BREAST MILK [None]
  - INFANTILE SPASMS [None]
